FAERS Safety Report 9148755 (Version 1)
Quarter: 2013Q1

REPORT INFORMATION
  Report Type: Spontaneous
  Country: US (occurrence: None)
  Receive Date: 20130227
  Receipt Date: 20130227
  Transmission Date: 20140127
  Serious: Yes (Hospitalization, Other)
  Sender: FDA-Public Use
  Company Number: None

PATIENT
  Age: 16 Year
  Sex: Female
  Weight: 61.24 kg

DRUGS (1)
  1. CYMBALTA [Suspect]
     Indication: DEPRESSION
     Dosage: 60 MG DALIY
     Dates: start: 20121201, end: 20130225

REACTIONS (7)
  - Convulsion [None]
  - Depression [None]
  - Pain [None]
  - Pain [None]
  - Hypokinesia [None]
  - Gait disturbance [None]
  - Dizziness [None]
